FAERS Safety Report 15658446 (Version 2)
Quarter: 2018Q4

REPORT INFORMATION
  Report Type: Report from Study
  Country: US (occurrence: US)
  Receive Date: 20181126
  Receipt Date: 20181130
  Transmission Date: 20190205
  Serious: Yes (Hospitalization)
  Sender: FDA-Public Use
  Company Number: US-ACTELION-A-US2018-179932

PATIENT
  Age: 60 Year
  Sex: Male
  Weight: 95.69 kg

DRUGS (4)
  1. ADCIRCA [Concomitant]
     Active Substance: TADALAFIL
  2. OPSUMIT [Suspect]
     Active Substance: MACITENTAN
     Indication: PULMONARY ARTERIAL HYPERTENSION
     Dosage: 10 MG, QD
     Route: 048
  3. SILDENAFIL CITRATE. [Concomitant]
     Active Substance: SILDENAFIL CITRATE
  4. ADEMPAS [Suspect]
     Active Substance: RIOCIGUAT
     Indication: PRODUCT USED FOR UNKNOWN INDICATION
     Dosage: 1.5 MG, TID
     Route: 065

REACTIONS (9)
  - Hospitalisation [Unknown]
  - Fluid overload [Unknown]
  - Weight increased [Unknown]
  - Dyspnoea [Unknown]
  - Headache [Unknown]
  - Abdominal discomfort [Unknown]
  - Fluid retention [Unknown]
  - Dyspnoea exertional [Unknown]
  - Constipation [Unknown]

NARRATIVE: CASE EVENT DATE: 201810
